FAERS Safety Report 24366791 (Version 1)
Quarter: 2024Q3

REPORT INFORMATION
  Report Type: Spontaneous
  Country: FR (occurrence: FR)
  Receive Date: 20240926
  Receipt Date: 20240926
  Transmission Date: 20241017
  Serious: Yes (Hospitalization)
  Sender: Waylis
  Company Number: None

PATIENT
  Age: 62 Year
  Sex: Male
  Weight: 67 kg

DRUGS (4)
  1. DIAZEPAM [Suspect]
     Active Substance: DIAZEPAM
     Indication: Intentional overdose
     Dosage: 10 MG X20 CP; IN TOTAL
     Route: 050
     Dates: start: 20240814, end: 20240814
  2. GABAPENTIN [Suspect]
     Active Substance: GABAPENTIN
     Indication: Intentional overdose
     Dosage: 300 MG X20 CP; IN TOTAL
     Route: 050
     Dates: start: 20240814, end: 20240814
  3. MORPHINE [Suspect]
     Active Substance: MORPHINE
     Indication: Intentional overdose
     Dosage: 10 MG X20 CP; IN TOTAL
     Route: 050
     Dates: start: 20240814, end: 20240814
  4. OLANZAPINE [Suspect]
     Active Substance: OLANZAPINE
     Indication: Intentional overdose
     Dosage: ; IN TOTAL
     Route: 050
     Dates: start: 20240814, end: 20240814

REACTIONS (4)
  - Bradypnoea [Recovered/Resolved]
  - Coma [Recovered/Resolved]
  - Poisoning deliberate [Recovered/Resolved]
  - Miosis [Recovered/Resolved]

NARRATIVE: CASE EVENT DATE: 20240814
